FAERS Safety Report 19497496 (Version 2)
Quarter: 2021Q3

REPORT INFORMATION
  Report Type: Spontaneous
  Country: CA (occurrence: CA)
  Receive Date: 20210706
  Receipt Date: 20210730
  Transmission Date: 20211014
  Serious: Yes (Hospitalization)
  Sender: FDA-Public Use
  Company Number: CA-ROCHE-2861235

PATIENT
  Age: 55 Year
  Sex: Male
  Weight: 74 kg

DRUGS (11)
  1. METHYLPREDNISOLONE SODIUM SUCCINATE. [Concomitant]
     Active Substance: METHYLPREDNISOLONE SODIUM SUCCINATE
  2. TADALAFIL. [Concomitant]
     Active Substance: TADALAFIL
  3. MYCOPHENOLATE MOFETIL. [Concomitant]
     Active Substance: MYCOPHENOLATE MOFETIL
     Dosage: 1.0 DOSAGE?FORMS
  4. ACETAMINOPHEN. [Concomitant]
     Active Substance: ACETAMINOPHEN
     Dosage: 1.0 DAYS
  5. ALPRAZOLAM. [Concomitant]
     Active Substance: ALPRAZOLAM
  6. CALCIUM [Concomitant]
     Active Substance: CALCIUM
  7. DIPHENHYDRAMINE. [Concomitant]
     Active Substance: DIPHENHYDRAMINE
  8. PREGABALIN. [Concomitant]
     Active Substance: PREGABALIN
  9. ALENDRONATE SODIUM. [Concomitant]
     Active Substance: ALENDRONATE SODIUM
  10. RITUXIMAB. [Suspect]
     Active Substance: RITUXIMAB
     Indication: GRANULOMATOSIS WITH POLYANGIITIS
     Route: 042
  11. DILANTIN [Concomitant]
     Active Substance: PHENYTOIN
     Dosage: 1.0 DOSAGE?FORMS

REACTIONS (9)
  - Blood pressure fluctuation [Not Recovered/Not Resolved]
  - Headache [Not Recovered/Not Resolved]
  - Hip fracture [Not Recovered/Not Resolved]
  - Fall [Not Recovered/Not Resolved]
  - Off label use [Unknown]
  - Product use issue [Unknown]
  - Contusion [Not Recovered/Not Resolved]
  - Intentional product use issue [Unknown]
  - Bladder disorder [Not Recovered/Not Resolved]
